FAERS Safety Report 12300146 (Version 1)
Quarter: 2016Q2

REPORT INFORMATION
  Report Type: Spontaneous
  Country: IE (occurrence: IE)
  Receive Date: 20160425
  Receipt Date: 20160425
  Transmission Date: 20160815
  Serious: Yes (Other)
  Sender: FDA-Public Use
  Company Number: IE-ASPEN PHARMA TRADING LIMITED US-AG-2016-005701

PATIENT
  Age: 19 Year
  Sex: Female

DRUGS (8)
  1. BUSULFAN. [Suspect]
     Active Substance: BUSULFAN
     Indication: STEM CELL TRANSPLANT
     Route: 065
  2. VALGANCICLOVIR. [Concomitant]
     Active Substance: VALGANCICLOVIR
     Indication: INFECTIOUS MONONUCLEOSIS
     Route: 065
  3. ETOPOSIDE. [Concomitant]
     Active Substance: ETOPOSIDE
     Indication: LIVER FUNCTION TEST ABNORMAL
     Dosage: 4 CYCLES
     Route: 065
  4. FLUDARABINE [Concomitant]
     Active Substance: FLUDARABINE PHOSPHATE
     Indication: STEM CELL TRANSPLANT
     Route: 065
  5. ALEMTUZUMAB [Concomitant]
     Active Substance: ALEMTUZUMAB
     Indication: STEM CELL TRANSPLANT
     Route: 065
  6. DEXAMETHASONE. [Concomitant]
     Active Substance: DEXAMETHASONE
     Indication: LIVER FUNCTION TEST ABNORMAL
     Dosage: 4 CYCLES
     Route: 065
  7. PREDNISOLONE. [Concomitant]
     Active Substance: PREDNISOLONE
     Indication: INFECTIOUS MONONUCLEOSIS
     Route: 065
  8. GEMCITABINE [Concomitant]
     Active Substance: GEMCITABINE\GEMCITABINE HYDROCHLORIDE
     Indication: LIVER FUNCTION TEST ABNORMAL
     Dosage: 4 CYCLES
     Route: 065

REACTIONS (2)
  - Drug ineffective [Unknown]
  - Graft versus host disease [Recovered/Resolved]
